FAERS Safety Report 20263978 (Version 1)
Quarter: 2021Q4

REPORT INFORMATION
  Report Type: Spontaneous
  Country: IE (occurrence: IE)
  Receive Date: 20211231
  Receipt Date: 20211231
  Transmission Date: 20220303
  Serious: Yes (Hospitalization, Other)
  Sender: FDA-Public Use
  Company Number: IE-Accord-248538

PATIENT
  Age: 28 Year
  Sex: Male

DRUGS (2)
  1. MYCOPHENOLATE MOFETIL [Suspect]
     Active Substance: MYCOPHENOLATE MOFETIL
     Indication: Lupus nephritis
     Dosage: ONE GRAM TWICE DAILY
  2. ISAVUCONAZOLE [Suspect]
     Active Substance: ISAVUCONAZOLE
     Dosage: (200 MG IV EVERY EIGHT HOURS FOR TWO DAYS, THEN 200 MG ONCE DAILY ORALLY).
     Route: 042

REACTIONS (7)
  - Anaemia [Unknown]
  - Pancytopenia [Unknown]
  - Hypogammaglobulinaemia [Unknown]
  - Cutaneous mucormycosis [Unknown]
  - Opportunistic infection [Unknown]
  - Chronic kidney disease [Unknown]
  - Off label use [Unknown]
